FAERS Safety Report 8017380-0 (Version None)
Quarter: 2012Q1

REPORT INFORMATION
  Report Type: 
  Country: None (occurrence: None)
  Receive Date: 20120102
  Receipt Date: 20111226
  Transmission Date: 20120608
  Serious: Yes (Other)
  Sender: FDA-Public Use
  Company Number: FR-ROCHE-1016752

PATIENT
  Sex: Female
  Weight: 50 kg

DRUGS (12)
  1. ACTEMRA [Suspect]
     Indication: RHEUMATOID ARTHRITIS
  2. OXYCONTIN [Concomitant]
     Indication: RHEUMATOID ARTHRITIS
     Route: 048
  3. LEXOMIL [Concomitant]
  4. FUROSEMIDE [Concomitant]
  5. PLAVIX [Concomitant]
     Route: 048
  6. TRANDOLAPRIL [Concomitant]
  7. PAROXETINE HCL [Concomitant]
  8. OMEPRAZOLE [Concomitant]
  9. ARANESP [Concomitant]
  10. ASPIRIN [Concomitant]
  11. ACTEMRA [Suspect]
     Route: 042
     Dates: start: 20110922
  12. BISOPROLOL FUMARATE [Concomitant]

REACTIONS (2)
  - BLOOD CREATININE INCREASED [None]
  - RENAL FAILURE [None]
